FAERS Safety Report 9109449 (Version 4)
Quarter: 2013Q1

REPORT INFORMATION
  Report Type: Report from Study
  Country: CA (occurrence: CA)
  Receive Date: 20130222
  Receipt Date: 20130312
  Transmission Date: 20140127
  Serious: Yes (Other)
  Sender: FDA-Public Use
  Company Number: CA-JNJFOC-20130209070

PATIENT
  Sex: Female
  Weight: 84 kg

DRUGS (4)
  1. REMICADE [Suspect]
     Indication: RHEUMATOID ARTHRITIS
     Route: 042
     Dates: end: 20130110
  2. REMICADE [Suspect]
     Indication: RHEUMATOID ARTHRITIS
     Route: 042
     Dates: start: 20100923
  3. DILTIAZEM [Concomitant]
     Route: 048
  4. TRIAZIDE [Concomitant]
     Dosage: 50/25 MG
     Route: 065

REACTIONS (2)
  - Hypertension [Recovered/Resolved]
  - Tachycardia [Recovering/Resolving]
